FAERS Safety Report 10051775 (Version 1)
Quarter: 2014Q2

REPORT INFORMATION
  Report Type: Spontaneous
  Country: US (occurrence: US)
  Receive Date: 20140402
  Receipt Date: 20140402
  Transmission Date: 20141212
  Serious: Yes (Hospitalization, Other)
  Sender: FDA-Public Use
  Company Number: US-AMGEN-USASP2014022171

PATIENT
  Age: 73 Year
  Sex: Female
  Weight: 85.71 kg

DRUGS (1)
  1. ENBREL [Suspect]
     Indication: RHEUMATOID ARTHRITIS
     Dosage: UNK
     Route: 058
     Dates: start: 2008, end: 2010

REACTIONS (3)
  - Lung neoplasm malignant [Unknown]
  - Drug ineffective [Recovered/Resolved]
  - Abdominal hernia [Unknown]
